FAERS Safety Report 12885843 (Version 1)
Quarter: 2016Q4

REPORT INFORMATION
  Report Type: Spontaneous
  Country: US (occurrence: US)
  Receive Date: 20161025
  Receipt Date: 20161025
  Transmission Date: 20170207
  Serious: Yes (Other)
  Sender: FDA-Public Use
  Company Number: None

PATIENT
  Age: 15 Year
  Sex: Female
  Weight: 99 kg

DRUGS (2)
  1. FLOVENT HFA [Concomitant]
     Active Substance: FLUTICASONE PROPIONATE
  2. VYVANSE [Suspect]
     Active Substance: LISDEXAMFETAMINE DIMESYLATE
     Indication: ATTENTION DEFICIT/HYPERACTIVITY DISORDER
     Dates: start: 20160903, end: 20161025

REACTIONS (7)
  - Fatigue [None]
  - Drug ineffective [None]
  - Disturbance in attention [None]
  - Withdrawal syndrome [None]
  - Lethargy [None]
  - Educational problem [None]
  - Stress [None]

NARRATIVE: CASE EVENT DATE: 20161004
